FAERS Safety Report 4717260-X (Version None)
Quarter: 2005Q3

REPORT INFORMATION
  Report Type: 
  Country: None (occurrence: None)
  Receive Date: 20050715
  Receipt Date: 20050701
  Transmission Date: 20060218
  Serious: Yes (Hospitalization)
  Sender: FDA-Public Use
  Company Number: 2005PV000201

PATIENT
  Age: 60 Year
  Sex: Female

DRUGS (6)
  1. BYETTA [Suspect]
     Indication: DIABETES MELLITUS NON-INSULIN-DEPENDENT
     Dosage: 5 UG; BID; SC
     Route: 058
     Dates: start: 20050601
  2. AVANDAMET [Concomitant]
  3. PROTONIX [Concomitant]
  4. MOBIC [Concomitant]
  5. SYNTHROID [Concomitant]
  6. LIPITOR [Concomitant]

REACTIONS (8)
  - BLOOD POTASSIUM DECREASED [None]
  - DEHYDRATION [None]
  - ENTEROCOLITIS INFECTIOUS [None]
  - INFLUENZA [None]
  - NAUSEA [None]
  - ORAL INTAKE REDUCED [None]
  - PAIN [None]
  - WHITE BLOOD CELL COUNT INCREASED [None]
